FAERS Safety Report 24250231 (Version 1)
Quarter: 2024Q3

REPORT INFORMATION
  Report Type: Spontaneous
  Country: US (occurrence: US)
  Receive Date: 20240826
  Receipt Date: 20240826
  Transmission Date: 20241017
  Serious: No
  Sender: pharmaAND
  Company Number: US-PHARMAAND GMBH-2024PHR00016

PATIENT
  Age: 75 Year
  Sex: Male
  Weight: 70.295 kg

DRUGS (2)
  1. PEGASYS [Suspect]
     Active Substance: PEGINTERFERON ALFA-2A
     Indication: Polycythaemia vera
     Dosage: 180 ?G, 2X/MONTH (EVERY 2 WEEKS) ON MONDAYS
     Route: 058
     Dates: start: 20240108
  2. HYDROXYCHLOROQUINE [Concomitant]
     Active Substance: HYDROXYCHLOROQUINE

REACTIONS (3)
  - Influenza like illness [Recovered/Resolved]
  - Incorrect dose administered [Recovered/Resolved]
  - Off label use [Not Recovered/Not Resolved]

NARRATIVE: CASE EVENT DATE: 20240108
